FAERS Safety Report 7547197-2 (Version None)
Quarter: 2011Q2

REPORT INFORMATION
  Report Type: 
  Country: None (occurrence: None)
  Receive Date: 20110614
  Receipt Date: 20110601
  Transmission Date: 20111010
  Serious: Yes (Hospitalization)
  Sender: FDA-Public Use
  Company Number: DE-UCBSA-031372

PATIENT
  Sex: Male
  Weight: 58 kg

DRUGS (19)
  1. CIMZIA [Suspect]
     Indication: RHEUMATOID ARTHRITIS
     Dosage: NO. OF DOSES RECEIVED:3X
     Route: 058
     Dates: start: 20100210, end: 20100309
  2. CIMZIA [Suspect]
     Route: 058
     Dates: start: 20110430
  3. PREDNISOLONE [Concomitant]
  4. FOLIC ACID [Concomitant]
     Indication: VITAMIN B1 DEFICIENCY
  5. PREDNISOLONE [Concomitant]
     Dosage: DOSE INCREASED
  6. GLIMEPIRIDE [Concomitant]
     Indication: DIABETES MELLITUS
     Dosage: DOSAGE FREQUENCY:1
  7. METFORMIN HCL [Concomitant]
     Indication: DIABETES MELLITUS
     Dosage: DOSE FREQUENCY:2
  8. ENALAPRIL MALEATE [Concomitant]
     Indication: HYPERTENSION
  9. ALENDRONATE SODIUM [Concomitant]
     Indication: OSTEOPOROSIS
  10. PREDNISOLONE [Concomitant]
     Indication: RHEUMATOID ARTHRITIS
     Dosage: FREQUENCY:1
  11. NOVALGIN [Concomitant]
     Dosage: DOSE FREQUENCY:2
  12. METHOTREXATE [Concomitant]
     Dates: start: 20090112
  13. CALCIVIT D CHEWABLE TABLET [Concomitant]
     Indication: OSTEOPOROSIS PROPHYLAXIS
     Dosage: FREQUENCY:2
  14. SINGULAIR [Concomitant]
     Indication: CHRONIC OBSTRUCTIVE PULMONARY DISEASE
     Dosage: DOSE FREQUENCY:1
  15. INSULIN PROTAPHANE [Concomitant]
     Indication: DIABETES MELLITUS
     Dosage: 18-0-0-28 IU
  16. CIMZIA [Suspect]
     Dosage: NO. OF DOSES RECEIVED:12X
     Route: 058
     Dates: start: 20100323, end: 20110330
  17. ANTRA MUPS [Concomitant]
     Indication: GASTRITIS EROSIVE
     Dosage: DOSE FREQUENCY:1
  18. FERROUS SULFATE TAB [Concomitant]
     Indication: IRON DEFICIENCY
     Dosage: DOSE FREQUENCY:2
  19. OXYGESIC [Concomitant]
     Dosage: 5 (UNITS UNSPECIFIED)  DOSE FREQUENCY:2
     Dates: start: 20100625

REACTIONS (1)
  - PNEUMONIA [None]
